FAERS Safety Report 10373590 (Version 1)
Quarter: 2014Q3

REPORT INFORMATION
  Report Type: Report from Study
  Country: CA (occurrence: CA)
  Receive Date: 20140808
  Receipt Date: 20140808
  Transmission Date: 20150326
  Serious: Yes (Death, Hospitalization)
  Sender: FDA-Public Use
  Company Number: CA-JNJFOC-20140802506

PATIENT
  Age: 25 Year
  Sex: Female

DRUGS (3)
  1. TYLENOL [Suspect]
     Active Substance: ACETAMINOPHEN
     Route: 048
  2. ETHANOL [Concomitant]
     Active Substance: ALCOHOL
     Indication: PRODUCT USED FOR UNKNOWN INDICATION
     Route: 048
  3. TYLENOL [Suspect]
     Active Substance: ACETAMINOPHEN
     Indication: PRODUCT USED FOR UNKNOWN INDICATION
     Route: 048
     Dates: start: 20040815, end: 20040815

REACTIONS (6)
  - Acute lung injury [Fatal]
  - Encephalopathy [Fatal]
  - Overdose [Fatal]
  - Uterine dilation and curettage [Fatal]
  - Renal failure acute [Fatal]
  - Hypotension [Fatal]

NARRATIVE: CASE EVENT DATE: 200408
